FAERS Safety Report 19646599 (Version 1)
Quarter: 2021Q3

REPORT INFORMATION
  Report Type: Spontaneous
  Country: ZA (occurrence: ZA)
  Receive Date: 20210802
  Receipt Date: 20210802
  Transmission Date: 20211014
  Serious: Yes (Other)
  Sender: FDA-Public Use
  Company Number: NVSC2021ZA163904

PATIENT
  Sex: Female

DRUGS (1)
  1. VSIQQ [Suspect]
     Active Substance: BROLUCIZUMAB
     Indication: NEOVASCULAR AGE-RELATED MACULAR DEGENERATION
     Dosage: 1 MG, QMO (27.6 MG)
     Route: 047
     Dates: start: 20210623, end: 20210623

REACTIONS (3)
  - Eye swelling [Not Recovered/Not Resolved]
  - Macular oedema [Not Recovered/Not Resolved]
  - Condition aggravated [Not Recovered/Not Resolved]
